FAERS Safety Report 6014725-8 (Version None)
Quarter: 2008Q4

REPORT INFORMATION
  Report Type: 
  Country: None (occurrence: None)
  Receive Date: 20081219
  Receipt Date: 20081208
  Transmission Date: 20090506
  Serious: Yes (Other)
  Sender: FDA-Public Use
  Company Number: CA-PFIZER INC-2008154902

PATIENT

DRUGS (3)
  1. CHAMPIX [Suspect]
     Dosage: 1 MG, UNK
     Route: 048
     Dates: end: 20081207
  2. SANDOMIGRAN [Concomitant]
     Dosage: UNK
  3. SALBUTAMOL [Concomitant]
     Dosage: UNK

REACTIONS (2)
  - CONVULSION [None]
  - MOTOR DYSFUNCTION [None]
